FAERS Safety Report 6296195-8 (Version None)
Quarter: 2009Q3

REPORT INFORMATION
  Report Type: 
  Country: None (occurrence: None)
  Receive Date: 20090804
  Receipt Date: 20090728
  Transmission Date: 20100115
  Serious: Yes (Hospitalization, Other)
  Sender: FDA-Public Use
  Company Number: SE-ASTRAZENECA-2009SE06207

PATIENT
  Age: 19 Year
  Sex: Male

DRUGS (3)
  1. SEROQUEL [Suspect]
     Dosage: 68 TABLETS (13,6 G)
     Route: 048
  2. PROPIOMAZINE [Concomitant]
  3. ZOPICLONE [Concomitant]

REACTIONS (3)
  - DRUG TOXICITY [None]
  - OVERDOSE [None]
  - TROPONIN INCREASED [None]
